FAERS Safety Report 23084396 (Version 3)
Quarter: 2023Q4

REPORT INFORMATION
  Report Type: Spontaneous
  Country: US (occurrence: US)
  Receive Date: 20231019
  Receipt Date: 20231123
  Transmission Date: 20240110
  Serious: Yes (Other)
  Sender: FDA-Public Use
  Company Number: US-PFIZER INC-202300279534

PATIENT
  Age: 64 Year
  Sex: Female
  Weight: 85.714 kg

DRUGS (4)
  1. PRISTIQ EXTENDED-RELEASE [Suspect]
     Active Substance: DESVENLAFAXINE SUCCINATE
     Indication: Depression
     Dosage: 50 MG, 1X/DAY (ONCE A DAY CONSTANTLY)
     Dates: start: 20090717
  2. PRISTIQ EXTENDED-RELEASE [Suspect]
     Active Substance: DESVENLAFAXINE SUCCINATE
     Indication: Fibromyalgia
     Dosage: 100 MG, 1X/DAY
     Route: 048
     Dates: start: 2019
  3. LOSARTAN [Concomitant]
     Active Substance: LOSARTAN
     Indication: Hypertension
     Dosage: UNK
     Route: 048
  4. OZEMPIC [Concomitant]
     Active Substance: SEMAGLUTIDE
     Indication: Weight decreased
     Dosage: 1 MG, WEEKLY
     Dates: start: 202301

REACTIONS (6)
  - Breast cancer female [Recovered/Resolved]
  - Spinal laminectomy [Unknown]
  - Therapeutic product effect decreased [Recovering/Resolving]
  - Lung cyst [Recovered/Resolved]
  - Vision blurred [Unknown]
  - Rhinitis [Unknown]

NARRATIVE: CASE EVENT DATE: 20110101
